FAERS Safety Report 22093403 (Version 3)
Quarter: 2023Q1

REPORT INFORMATION
  Report Type: Spontaneous
  Country: US (occurrence: US)
  Receive Date: 20230314
  Receipt Date: 20230322
  Transmission Date: 20230418
  Serious: No
  Sender: FDA-Public Use
  Company Number: US-ALKERMES INC.-ALK-2023-001089

PATIENT
  Sex: Female
  Weight: 83.9 kg

DRUGS (1)
  1. ARISTADA [Suspect]
     Active Substance: ARIPIPRAZOLE LAUROXIL
     Indication: Schizophrenia
     Dosage: 882 MILLIGRAM
     Route: 030

REACTIONS (3)
  - Product administered by wrong person [Unknown]
  - Product physical consistency issue [Unknown]
  - Poor quality product administered [Recovered/Resolved]
